FAERS Safety Report 15839579 (Version 2)
Quarter: 2019Q1

REPORT INFORMATION
  Report Type: Spontaneous
  Country: DE (occurrence: DE)
  Receive Date: 20190117
  Receipt Date: 20190304
  Transmission Date: 20190417
  Serious: Yes (Congenital Anomaly, Other)
  Sender: FDA-Public Use
  Company Number: DE-MYLANLABS-2019M1003690

PATIENT
  Weight: 2.85 kg

DRUGS (1)
  1. IBUPROFEN. [Suspect]
     Active Substance: IBUPROFEN
     Indication: PRODUCT USED FOR UNKNOWN INDICATION
     Dosage: UNK
     Route: 064

REACTIONS (9)
  - Cardiac hypertrophy [Unknown]
  - Right ventricular hypertrophy [Not Recovered/Not Resolved]
  - Foetal exposure during pregnancy [Recovered/Resolved]
  - Cardiomegaly [Unknown]
  - Apgar score low [Unknown]
  - Ductus arteriosus stenosis foetal [Unknown]
  - Pulmonary valve incompetence [Recovered/Resolved]
  - Tricuspid valve incompetence [Recovered/Resolved]
  - Ductus arteriosus premature closure [Recovered/Resolved with Sequelae]

NARRATIVE: CASE EVENT DATE: 200209
